FAERS Safety Report 5529571-9 (Version None)
Quarter: 2007Q4

REPORT INFORMATION
  Report Type: 
  Country: None (occurrence: None)
  Receive Date: 20071129
  Receipt Date: 20071120
  Transmission Date: 20080405
  Serious: Yes (Death, Other)
  Sender: FDA-Public Use
  Company Number: JP-GENENTECH-250557

PATIENT
  Sex: Male

DRUGS (5)
  1. RITUXAN [Suspect]
     Indication: NON-HODGKIN'S LYMPHOMA
     Dosage: 530 MG, QD
     Route: 042
     Dates: start: 20070314
  2. BLEOMYCIN [Suspect]
     Indication: NON-HODGKIN'S LYMPHOMA
     Dosage: 13 MG, UNKNOWN
     Route: 042
     Dates: start: 20070221
  3. DACARBAZINE [Concomitant]
     Indication: NON-HODGKIN'S LYMPHOMA
     Dosage: 371 MG, UNK
     Route: 042
     Dates: start: 20070221
  4. DOXORUBICIN HCL [Concomitant]
     Indication: NON-HODGKIN'S LYMPHOMA
     Dosage: 37 MG, UNK
     Route: 042
     Dates: start: 20070221
  5. VINBLASTINE [Concomitant]
     Indication: NON-HODGKIN'S LYMPHOMA
     Dosage: 8.9 MG, UNK
     Route: 042
     Dates: start: 20070221

REACTIONS (1)
  - INTERSTITIAL LUNG DISEASE [None]
